FAERS Safety Report 25973689 (Version 1)
Quarter: 2025Q4

REPORT INFORMATION
  Report Type: Spontaneous
  Country: US (occurrence: US)
  Receive Date: 20251029
  Receipt Date: 20251029
  Transmission Date: 20260118
  Serious: Yes (Other)
  Sender: AMNEAL
  Company Number: US-AMNEAL PHARMACEUTICALS-2024-AMRX-03924

PATIENT
  Age: 37 Year
  Sex: Female
  Weight: 70.295 kg

DRUGS (2)
  1. PROGESTERONE [Suspect]
     Active Substance: PROGESTERONE
     Indication: Progesterone decreased
     Dosage: 200 MG, 600 MG/ DAILY
     Route: 048
  2. PROGESTERONE [Suspect]
     Active Substance: PROGESTERONE
     Indication: Pregnancy

REACTIONS (10)
  - Exposure during pregnancy [Unknown]
  - Reaction to azo-dyes [Recovered/Resolved]
  - Insomnia [Recovered/Resolved]
  - Pruritus [Recovered/Resolved]
  - Progesterone decreased [Recovered/Resolved]
  - Acne [Recovered/Resolved]
  - Night sweats [Recovered/Resolved]
  - Vaginal haemorrhage [Recovered/Resolved]
  - Mood swings [Recovered/Resolved]
  - Product substitution issue [Recovered/Resolved]

NARRATIVE: CASE EVENT DATE: 20241009
